FAERS Safety Report 18489520 (Version 1)
Quarter: 2020Q4

REPORT INFORMATION
  Report Type: Report from Study
  Country: DE (occurrence: DE)
  Receive Date: 20201111
  Receipt Date: 20201111
  Transmission Date: 20210114
  Serious: Yes (Death, Other)
  Sender: FDA-Public Use
  Company Number: DE-AUROBINDO-AUR-APL-2020-056161

PATIENT
  Sex: Female

DRUGS (8)
  1. CYCLOPHOSPHAMIDE. [Suspect]
     Active Substance: CYCLOPHOSPHAMIDE
     Indication: B-CELL LYMPHOMA
     Dosage: 1400 MILLIGRAM, WEEKLY
     Route: 042
     Dates: start: 20151023, end: 20160106
  2. TAZOBACTAM [Concomitant]
     Active Substance: TAZOBACTAM
     Indication: PYREXIA
     Dosage: 4.5 UNK, 3 TIMES A DAY
     Route: 042
     Dates: start: 20160608
  3. VINCRISTINE SULFATE LIPOSOME INJECTION [Suspect]
     Active Substance: VINCRISTINE SULFATE
     Indication: B-CELL LYMPHOMA
     Dosage: 3.78 MILLIGRAM, WEEKLY
     Route: 042
     Dates: start: 20151023, end: 20161218
  4. PEGFILGRASTIM [Suspect]
     Active Substance: PEGFILGRASTIM
     Indication: B-CELL LYMPHOMA
     Dosage: 6000 MICROGRAM
     Route: 042
     Dates: start: 20151027, end: 20160110
  5. MABTHERA [Suspect]
     Active Substance: RITUXIMAB
     Indication: B-CELL LYMPHOMA
     Dosage: 700 MILLIGRAM, WEEKLY
     Route: 042
     Dates: start: 20151021, end: 20160203
  6. PERFALGAN [Concomitant]
     Active Substance: ACETAMINOPHEN
     Indication: PYREXIA
     Dosage: 19 GRAM
     Route: 042
     Dates: start: 20160608
  7. DOXORUBICIN [Suspect]
     Active Substance: DOXORUBICIN
     Indication: B-CELL LYMPHOMA
     Dosage: 0.5 MILLIGRAM, WEEKLY
     Route: 042
     Dates: start: 20151023, end: 20160106
  8. PREDNISOLONE. [Suspect]
     Active Substance: PREDNISOLONE
     Indication: B-CELL LYMPHOMA
     Dosage: 500 MILLIGRAM, WEEKLY
     Route: 042
     Dates: start: 20151023, end: 20160106

REACTIONS (1)
  - B-cell type acute leukaemia [Fatal]

NARRATIVE: CASE EVENT DATE: 20160607
